FAERS Safety Report 14829264 (Version 3)
Quarter: 2018Q2

REPORT INFORMATION
  Report Type: Report from Study
  Country: JP (occurrence: JP)
  Receive Date: 20180430
  Receipt Date: 20180605
  Transmission Date: 20180711
  Serious: Yes (Death)
  Sender: FDA-Public Use
  Company Number: JP-BEH-2018090207

PATIENT
  Age: 76 Year
  Sex: Male
  Weight: 63 kg

DRUGS (26)
  1. MANNITOL. [Concomitant]
     Active Substance: MANNITOL
     Indication: SURGERY
     Dosage: UNK
     Route: 048
     Dates: start: 20171027, end: 20171027
  2. REMIFENTANIL [Concomitant]
     Active Substance: REMIFENTANIL
     Indication: SURGERY
     Dosage: UNK
     Route: 065
     Dates: start: 20171027, end: 20171027
  3. NICARDIPINE [Concomitant]
     Active Substance: NICARDIPINE
     Dosage: UNK
     Route: 065
     Dates: start: 20171026, end: 20171027
  4. TRANSAMIN [Concomitant]
     Active Substance: TRANEXAMIC ACID
     Dosage: UNK
     Route: 065
     Dates: start: 20171026, end: 20171027
  5. NESINA [Concomitant]
     Active Substance: ALOGLIPTIN BENZOATE
     Dosage: UNK
     Route: 048
     Dates: end: 20171026
  6. ACETAMINOPHEN. [Concomitant]
     Active Substance: ACETAMINOPHEN
     Indication: SURGERY
     Dosage: UNK
     Route: 065
     Dates: start: 20171027, end: 20171027
  7. TAKEPRON [Concomitant]
     Active Substance: LANSOPRAZOLE
     Dosage: UNK
     Route: 065
     Dates: start: 20171026, end: 20171027
  8. GLYCEOL                            /00744501/ [Concomitant]
     Active Substance: GLYCERIN
     Dosage: UNK
     Route: 065
     Dates: start: 20171026, end: 20171027
  9. BERIPLEX P/N [Suspect]
     Active Substance: COAGULATION FACTOR IX HUMAN\COAGULATION FACTOR VII HUMAN\COAGULATION FACTOR X HUMAN\PROTEIN C\PROTEIN S HUMAN\PROTHROMBIN
     Indication: HAEMORRHAGE
     Dosage: 750 IU, UNK
     Route: 042
     Dates: start: 20171026
  10. DONEPEZIL. [Concomitant]
     Active Substance: DONEPEZIL
     Dosage: UNK
     Route: 048
     Dates: end: 20171026
  11. BRIDION [Concomitant]
     Active Substance: SUGAMMADEX
     Indication: SURGERY
     Dosage: UNK
     Route: 065
     Dates: start: 20171027, end: 20171027
  12. HEPARIN [Concomitant]
     Active Substance: HEPARIN SODIUM
     Indication: SURGERY
     Dosage: UNK
     Route: 065
     Dates: start: 20171027, end: 20171027
  13. PROPOFOL. [Concomitant]
     Active Substance: PROPOFOL
     Indication: SURGERY
     Dosage: UNK
     Route: 048
     Dates: start: 20171027, end: 20171027
  14. SUPRANE [Concomitant]
     Active Substance: DESFLURANE
     Indication: SURGERY
     Dosage: UNK
     Route: 065
     Dates: start: 20171027, end: 20171027
  15. XYLOCAINE [Concomitant]
     Active Substance: LIDOCAINE HYDROCHLORIDE
     Indication: SURGERY
     Dosage: UNK
     Route: 065
     Dates: start: 20171027, end: 20171027
  16. FOSPHENYTOIN [Concomitant]
     Active Substance: FOSPHENYTOIN\FOSPHENYTOIN SODIUM
     Dosage: UNK
     Route: 065
     Dates: start: 20171027, end: 20171027
  17. NEOSYNESIN                         /00116302/ [Concomitant]
     Indication: SURGERY
     Dosage: UNK
     Route: 065
     Dates: start: 20171027, end: 20171027
  18. GENTAMICIN. [Concomitant]
     Active Substance: GENTAMICIN
     Indication: SURGERY
     Dosage: UNK
     Route: 048
     Dates: start: 20171027, end: 20171027
  19. CEFAZOLIN [Concomitant]
     Active Substance: CEFAZOLIN
     Dosage: UNK
     Route: 065
     Dates: start: 20171026, end: 20171027
  20. ADONA                              /00056903/ [Concomitant]
     Active Substance: CARBAZOCHROME SODIUM SULFONATE
     Dosage: UNK
     Route: 065
     Dates: start: 20171026, end: 20171027
  21. EPHEDRIN [Concomitant]
     Active Substance: EPHEDRINE HYDROCHLORIDE
     Indication: SURGERY
     Dosage: UNK
     Route: 065
     Dates: start: 20171027, end: 20171027
  22. KAYTWO N [Concomitant]
     Active Substance: MENATETRENONE
     Indication: PROCOAGULANT THERAPY
     Dosage: 10 MG, UNK
     Route: 042
     Dates: start: 20171026, end: 20171026
  23. WARFARIN [Concomitant]
     Active Substance: WARFARIN
     Indication: PULMONARY INFARCTION
     Dosage: 1.5 MG, UNK
     Route: 048
     Dates: start: 20120925, end: 20171026
  24. ASPIRIN. [Concomitant]
     Active Substance: ASPIRIN
     Dosage: UNK
     Route: 048
     Dates: end: 20171026
  25. LANSOPRAZOLE. [Concomitant]
     Active Substance: LANSOPRAZOLE
     Dosage: UNK
     Route: 048
     Dates: end: 20171026
  26. ALLOPURINOL. [Concomitant]
     Active Substance: ALLOPURINOL
     Dosage: UNK
     Route: 048
     Dates: end: 20171026

REACTIONS (1)
  - Putamen haemorrhage [Fatal]
